FAERS Safety Report 5338082-5 (Version None)
Quarter: 2007Q2

REPORT INFORMATION
  Report Type: 
  Country: None (occurrence: None)
  Receive Date: 20070327
  Receipt Date: 20070127
  Transmission Date: 20071010
  Serious: No
  Sender: FDA-Public Use
  Company Number: 233851

PATIENT
  Age: 85 Year
  Sex: Female
  Weight: 49.9 kg

DRUGS (3)
  1. AVASTIN [Suspect]
     Indication: COLON CANCER
     Dosage: 260 MG, Q2W, INTRAVENOUS
     Route: 042
     Dates: start: 20060508
  2. FLUOROURACIL [Concomitant]
  3. CPT-11 [Concomitant]

REACTIONS (1)
  - IMPAIRED HEALING [None]
